FAERS Safety Report 6506776-1 (Version None)
Quarter: 2009Q4

REPORT INFORMATION
  Report Type: 
  Country: None (occurrence: None)
  Receive Date: 20091221
  Receipt Date: 20091214
  Transmission Date: 20100525
  Serious: Yes (Hospitalization)
  Sender: FDA-Public Use
  Company Number: BR-ROCHE-675324

PATIENT
  Sex: Female

DRUGS (1)
  1. TAMIFLU [Suspect]
     Indication: H1N1 INFLUENZA
     Dosage: THERAPY STOP DATE REPORTED AS 2009.
     Route: 065
     Dates: start: 20091101

REACTIONS (2)
  - ILL-DEFINED DISORDER [None]
  - PLATELET COUNT DECREASED [None]
